FAERS Safety Report 11043117 (Version 1)
Quarter: 2015Q2

REPORT INFORMATION
  Report Type: Spontaneous
  Country: US (occurrence: None)
  Receive Date: 20150416
  Receipt Date: 20150416
  Transmission Date: 20150821
  Serious: Yes (Hospitalization)
  Sender: FDA-Public Use
  Company Number: None

PATIENT
  Age: 58 Year
  Sex: Male
  Weight: 91.7 kg

DRUGS (2)
  1. LOPERAMIDE [Suspect]
     Active Substance: LOPERAMIDE
     Indication: DIARRHOEA
     Dosage: 4 MG  OTHER
     Route: 048
     Dates: start: 20150309, end: 20150310
  2. CLINDAMYCIN [Suspect]
     Active Substance: CLINDAMYCIN\CLINDAMYCIN PHOSPHATE
     Indication: INFECTION
     Route: 048
     Dates: start: 20150208, end: 20150310

REACTIONS (6)
  - Hyponatraemia [None]
  - Dehydration [None]
  - Sepsis [None]
  - Diarrhoea [None]
  - Clostridium difficile colitis [None]
  - Tachycardia [None]

NARRATIVE: CASE EVENT DATE: 20150308
